FAERS Safety Report 8040691-X (Version None)
Quarter: 2012Q1

REPORT INFORMATION
  Report Type: 
  Country: None (occurrence: None)
  Receive Date: 20120111
  Receipt Date: 20111230
  Transmission Date: 20120608
  Serious: No
  Sender: FDA-Public Use
  Company Number: US-AMGEN-USASP2011069754

PATIENT
  Age: 18 Year
  Sex: Female

DRUGS (1)
  1. ENBREL [Suspect]
     Indication: PSORIASIS
     Dosage: 50 MG, QWK
     Dates: start: 20101230

REACTIONS (5)
  - VITAMIN D DEFICIENCY [None]
  - INFECTIOUS MONONUCLEOSIS [None]
  - FATIGUE [None]
  - AGITATION [None]
  - ANXIETY [None]
